FAERS Safety Report 5818505-5 (Version None)
Quarter: 2008Q3

REPORT INFORMATION
  Report Type: 
  Country: None (occurrence: None)
  Receive Date: 20080718
  Receipt Date: 20080708
  Transmission Date: 20090109
  Serious: Yes (Life-Threatening, Hospitalization)
  Sender: FDA-Public Use
  Company Number: A0598021A

PATIENT
  Age: 48 Year
  Sex: Female
  Weight: 107.9561 kg

DRUGS (5)
  1. ARIXTRA [Suspect]
     Indication: THROMBOSIS PROPHYLAXIS
     Dosage: 2.5 MG/ PER DAY/ SUBCUTANEOUS
     Route: 058
     Dates: start: 20060308, end: 20060315
  2. VICODIN [Concomitant]
  3. SUMATRIPTAN SUCCINATE [Concomitant]
  4. POTASSIUM CITRATE [Concomitant]
  5. MAGNESIUM SALT [Concomitant]

REACTIONS (8)
  - ADDISON'S DISEASE [None]
  - ADRENAL HAEMORRHAGE [None]
  - DEEP VEIN THROMBOSIS [None]
  - DIARRHOEA [None]
  - HEPARIN-INDUCED THROMBOCYTOPENIA [None]
  - IMPAIRED WORK ABILITY [None]
  - MYALGIA [None]
  - VOMITING [None]
